FAERS Safety Report 17324483 (Version 1)
Quarter: 2020Q1

REPORT INFORMATION
  Report Type: Spontaneous
  Country: US (occurrence: US)
  Receive Date: 20200124
  Receipt Date: 20200124
  Transmission Date: 20200409
  Serious: No
  Sender: FDA-Public Use
  Company Number: None

PATIENT
  Age: 39 Year
  Sex: Female
  Weight: 51.75 kg

DRUGS (2)
  1. ESCITALOPRAM OXALATE TEVA [Suspect]
     Active Substance: ESCITALOPRAM OXALATE
     Indication: ANXIETY
     Dosage: ?          QUANTITY:1 TABLET(S);?
     Route: 048
     Dates: start: 20200107, end: 20200120
  2. ESCITALOPRAM OXALATE TEVA [Suspect]
     Active Substance: ESCITALOPRAM OXALATE
     Indication: DEPRESSION
     Dosage: ?          QUANTITY:1 TABLET(S);?
     Route: 048
     Dates: start: 20200107, end: 20200120

REACTIONS (10)
  - Diarrhoea [None]
  - Product substitution issue [None]
  - Nausea [None]
  - Abdominal pain [None]
  - Anxiety [None]
  - Flatulence [None]
  - Vomiting [None]
  - Insomnia [None]
  - Chest pain [None]
  - Photosensitivity reaction [None]

NARRATIVE: CASE EVENT DATE: 20200107
